FAERS Safety Report 9427993 (Version 1)
Quarter: 2013Q3

REPORT INFORMATION
  Report Type: Spontaneous
  Country: US (occurrence: US)
  Receive Date: 20130730
  Receipt Date: 20130730
  Transmission Date: 20140515
  Serious: No
  Sender: FDA-Public Use
  Company Number: US-ABBOTT-12P-163-0971237-00

PATIENT
  Sex: Female

DRUGS (4)
  1. NIASPAN (COATED) [Suspect]
     Indication: BLOOD CHOLESTEROL INCREASED
  2. ASA [Concomitant]
     Indication: PRODUCT USED FOR UNKNOWN INDICATION
  3. LOTREL [Concomitant]
     Indication: HYPERTENSION
  4. ZIAC [Concomitant]
     Indication: HYPERTENSION

REACTIONS (2)
  - Flushing [Not Recovered/Not Resolved]
  - Paraesthesia [Not Recovered/Not Resolved]
